APPROVED DRUG PRODUCT: TRIAMCINOLONE ACETONIDE
Active Ingredient: TRIAMCINOLONE ACETONIDE
Strength: 0.1%
Dosage Form/Route: CREAM;TOPICAL
Application: A040039 | Product #001 | TE Code: AT
Applicant: TARO PHARMACEUTICAL INDUSTRIES LTD
Approved: Nov 26, 1997 | RLD: No | RS: No | Type: RX